FAERS Safety Report 10792090 (Version 1)
Quarter: 2015Q1

REPORT INFORMATION
  Report Type: Spontaneous
  Country: DE (occurrence: None)
  Receive Date: 20150211
  Receipt Date: 20150211
  Transmission Date: 20150721
  Serious: Yes (Life-Threatening, Hospitalization, Other)
  Sender: FDA-Public Use
  Company Number: DEP_02492_2015

PATIENT
  Age: 21 Year
  Sex: Female

DRUGS (7)
  1. KETOPROFEN (KETOPROFEN) [Suspect]
     Active Substance: KETOPROFEN
     Indication: OVERDOSE
     Dosage: NOT THE PRESCRIBED AMOUNT, 30 TABLETS
  2. NICOTINIC ACID (NICOTINIC ACID) [Suspect]
     Active Substance: NIACIN
     Indication: OVERDOSE
     Dosage: NOT THE PRESCRIBED AMOUNT, 56 TABLETS
  3. GABAPENTIN (GABAPENTIN) [Suspect]
     Active Substance: GABAPENTIN
     Indication: OVERDOSE
     Dosage: NOT THE PRESCRIBED AMOUNT, 40 TABLETS
  4. AMLODIPINE [Suspect]
     Active Substance: AMLODIPINE BESYLATE
     Indication: OVERDOSE
     Dosage: NOT THE PRESCRIBED AMOUNT, 60 TABLETS
  5. CARVEDILOL (CARVEDILOL) [Suspect]
     Active Substance: CARVEDILOL
     Indication: OVERDOSE
     Dosage: NOT THE PRESCRIBED AMOUNT, 70 TABLETS
  6. TORSEMIDE (TORSEMIDE) UNKNOWN [Suspect]
     Active Substance: TORSEMIDE
     Indication: OVERDOSE
     Dosage: NOT THE PRESCRIBED AMOUNT, 50 TABLETS
  7. AMITRIPTYLINE (AMITRIPTYLINE) [Suspect]
     Active Substance: AMITRIPTYLINE
     Indication: OVERDOSE
     Dosage: NOT THE PRESCRIBED AMOUNT, 60 TABLETS?

REACTIONS (14)
  - Blood creatinine increased [None]
  - Toxicity to various agents [None]
  - Femoral artery dissection [None]
  - Compartment syndrome [None]
  - Intentional overdose [None]
  - Sinoatrial block [None]
  - Iatrogenic injury [None]
  - Pulse absent [None]
  - Cardiac failure [None]
  - Blood glucose increased [None]
  - Bradycardia [None]
  - Blood potassium increased [None]
  - Suicide attempt [None]
  - Loss of consciousness [None]
